FAERS Safety Report 24883051 (Version 2)
Quarter: 2025Q1

REPORT INFORMATION
  Report Type: Spontaneous
  Country: US (occurrence: US)
  Receive Date: 20250124
  Receipt Date: 20250128
  Transmission Date: 20250409
  Serious: Yes (Other)
  Sender: JOHNSON AND JOHNSON
  Company Number: US-JNJFOC-20250132789

PATIENT
  Age: 66 Year
  Sex: Male

DRUGS (1)
  1. CARVYKTI [Suspect]
     Active Substance: CILTACABTAGENE AUTOLEUCEL
     Indication: Product used for unknown indication
     Dates: start: 20231009

REACTIONS (11)
  - T-cell lymphoma [Unknown]
  - Eosinophilic colitis [Unknown]
  - Haemophagocytic lymphohistiocytosis [Unknown]
  - Lower respiratory tract infection [Unknown]
  - Pseudomonas infection [Unknown]
  - Melaena [Unknown]
  - Diarrhoea [Unknown]
  - COVID-19 [Unknown]
  - Staphylococcal infection [Unknown]
  - Herpes simplex [Unknown]
  - Hypotension [Unknown]
